FAERS Safety Report 6194810-0 (Version None)
Quarter: 2009Q2

REPORT INFORMATION
  Report Type: 
  Country: None (occurrence: None)
  Receive Date: 20090515
  Receipt Date: 20090430
  Transmission Date: 20091009
  Serious: Yes (Hospitalization)
  Sender: FDA-Public Use
  Company Number: 2009S1007610

PATIENT
  Age: 36 Year
  Sex: Male

DRUGS (9)
  1. AMOXICILLIN CLAVULANIC ACID [Suspect]
     Indication: OROPHARYNGEAL PAIN
     Dosage: 125 MG;Q8H
  2. LAMOTRIGINE [Suspect]
     Dosage: ORAL
     Route: 048
  3. VENLAFAXINE [Concomitant]
  4. VITAMIN B1 TAB [Concomitant]
  5. VITAMIN B6 [Concomitant]
  6. VITAMIN B-12 [Concomitant]
  7. TIAPRIDAL [Concomitant]
  8. CALCIUM CARBIMIDE [Concomitant]
  9. KETAZOLAM [Concomitant]

REACTIONS (4)
  - DRUG TOXICITY [None]
  - ERYTHEMA MULTIFORME [None]
  - HEPATITIS CHOLESTATIC [None]
  - OESOPHAGEAL CANDIDIASIS [None]
